FAERS Safety Report 5609083-4 (Version None)
Quarter: 2008Q1

REPORT INFORMATION
  Report Type: 
  Country: None (occurrence: None)
  Receive Date: 20080130
  Receipt Date: 20080130
  Transmission Date: 20080703
  Serious: Yes (Hospitalization)
  Sender: FDA-Public Use
  Company Number: None

PATIENT
  Sex: Female
  Weight: 58.3 kg

DRUGS (1)
  1. TEMOZOLOMIDE [Suspect]
     Dosage: 5520 MG

REACTIONS (7)
  - ENCEPHALOPATHY [None]
  - HEADACHE [None]
  - HEMIPARESIS [None]
  - INTRACRANIAL PRESSURE INCREASED [None]
  - MUSCULAR WEAKNESS [None]
  - NAUSEA [None]
  - VISION BLURRED [None]
